FAERS Safety Report 13872323 (Version 1)
Quarter: 2017Q3

REPORT INFORMATION
  Report Type: Spontaneous
  Country: MY (occurrence: MY)
  Receive Date: 20170816
  Receipt Date: 20170816
  Transmission Date: 20171127
  Serious: Yes (Other)
  Sender: FDA-Public Use
  Company Number: MY-BAXTER-2017BAX029336

PATIENT
  Age: 12 Year
  Sex: Female

DRUGS (1)
  1. HOLOXAN INJ 1GM (30ML VIAL) [Suspect]
     Active Substance: IFOSFAMIDE
     Indication: OSTEOSARCOMA
     Dosage: 30 ML VIAL
     Route: 042

REACTIONS (2)
  - Vomiting [Recovered/Resolved]
  - Tonic clonic movements [Recovered/Resolved]
